FAERS Safety Report 7270901-8 (Version None)
Quarter: 2011Q1

REPORT INFORMATION
  Report Type: 
  Country: None (occurrence: None)
  Receive Date: 20110125
  Receipt Date: 20110125
  Transmission Date: 20110831
  Serious: Yes (Other)
  Sender: FDA-Public Use
  Company Number: None

PATIENT
  Sex: Male
  Weight: 99.7913 kg

DRUGS (2)
  1. DILAPROST 5MG [Suspect]
     Dosage: 1.25 MG EVERYDAY PO
     Route: 048
     Dates: start: 20100915, end: 20101228
  2. PROPECIA [Suspect]
     Indication: ANDROGENETIC ALOPECIA
     Dosage: 1MG EVERYDAY PO 3 MONTHS OFF/ON
     Route: 048
     Dates: start: 20051210, end: 20060410

REACTIONS (10)
  - LOSS OF LIBIDO [None]
  - ERECTILE DYSFUNCTION [None]
  - NECK PAIN [None]
  - FATIGUE [None]
  - DEPRESSION [None]
  - MENTAL DISORDER [None]
  - ANXIETY [None]
  - ARTHRALGIA [None]
  - INSOMNIA [None]
  - APHASIA [None]
